FAERS Safety Report 5556851-3 (Version None)
Quarter: 2007Q4

REPORT INFORMATION
  Report Type: 
  Country: None (occurrence: None)
  Receive Date: 20071210
  Receipt Date: 20071210
  Transmission Date: 20080405
  Serious: No
  Sender: FDA-Public Use
  Company Number: None

PATIENT
  Age: 51 Year
  Sex: Male

DRUGS (1)
  1. HYDROMORPHONE HCL [Suspect]
     Indication: SURGERY
     Dosage: 4MG QID PO
     Route: 048
     Dates: start: 20070820, end: 20070830

REACTIONS (1)
  - HICCUPS [None]
